FAERS Safety Report 10494598 (Version 1)
Quarter: 2014Q4

REPORT INFORMATION
  Report Type: Spontaneous
  Country: US (occurrence: None)
  Receive Date: 20141002
  Receipt Date: 20141002
  Transmission Date: 20150528
  Serious: Yes (Other)
  Sender: FDA-Public Use
  Company Number: None

PATIENT
  Sex: Male

DRUGS (6)
  1. CLONAZEPAM. [Concomitant]
     Active Substance: CLONAZEPAM
  2. VITAMIN D [Concomitant]
     Active Substance: CHOLECALCIFEROL
  3. COPAXONE [Concomitant]
     Active Substance: GLATIRAMER ACETATE
  4. CELEXA [Concomitant]
     Active Substance: CITALOPRAM HYDROBROMIDE
  5. COPAXONE [Suspect]
     Active Substance: GLATIRAMER ACETATE
     Indication: MULTIPLE SCLEROSIS
     Route: 058
     Dates: start: 20140328
  6. DILANTIN [Concomitant]
     Active Substance: PHENYTOIN

REACTIONS (1)
  - Injection site erythema [None]
